FAERS Safety Report 4961941-X (Version None)
Quarter: 2006Q2

REPORT INFORMATION
  Report Type: 
  Country: None (occurrence: None)
  Receive Date: 20060404
  Receipt Date: 20041210
  Transmission Date: 20061013
  Serious: Yes (Hospitalization)
  Sender: FDA-Public Use
  Company Number: US-MERCK-0412USA01379

PATIENT
  Age: 51 Year
  Sex: Male
  Weight: 105 kg

DRUGS (2)
  1. VIOXX [Suspect]
     Indication: ARTHRALGIA
     Route: 048
     Dates: start: 20000701, end: 20040930
  2. VIOXX [Suspect]
     Indication: PAIN MANAGEMENT
     Route: 048
     Dates: start: 20000701, end: 20040930

REACTIONS (3)
  - ACUTE MYOCARDIAL INFARCTION [None]
  - BACK DISORDER [None]
  - GASTRIC DISORDER [None]
